FAERS Safety Report 9936794 (Version 1)
Quarter: 2014Q1

REPORT INFORMATION
  Report Type: Spontaneous
  Country: US (occurrence: None)
  Receive Date: 20140109
  Receipt Date: 20140109
  Transmission Date: 20141002
  Serious: Yes (Other)
  Sender: FDA-Public Use
  Company Number: 389665

PATIENT
  Age: 47 Year
  Sex: Male
  Weight: 113.4 kg

DRUGS (2)
  1. LEVEMIR FLEXPEN (INSULIN DETEMIR) SOLUTION FOR INJECTION, .0024MOL/L [Suspect]
     Indication: TYPE 2 DIABETES MELLITUS
     Dosage: 60 UNITS EVERY NIGHT AT BEDTIME, SUBCUTANEOUS
     Route: 058
     Dates: start: 201302
  2. NOVOLOG FLEXPEN (INSULIN ASPART) SOLUTION FOR INJECTION, 100U/ML [Suspect]
     Indication: TYPE 2 DIABETES MELLITUS
     Dosage: SLIDING SCALE, ABOUT 10 5 UNITS THREE TIMES DAILY, SUBCUTANEOUS
     Route: 058

REACTIONS (2)
  - Wrong drug administered [None]
  - Blood glucose decreased [None]
